FAERS Safety Report 6372155-3 (Version None)
Quarter: 2009Q3

REPORT INFORMATION
  Report Type: 
  Country: None (occurrence: None)
  Receive Date: 20090917
  Receipt Date: 20090904
  Transmission Date: 20100115
  Serious: Yes (Other)
  Sender: FDA-Public Use
  Company Number: ADR16202009

PATIENT
  Age: 33 Year
  Sex: Male

DRUGS (3)
  1. CITALOPRAM HYDROBROMIDE [Suspect]
     Indication: DEPRESSION
     Dosage: 40 MG ORAL USE
     Route: 048
     Dates: start: 20070509
  2. MIRTAZAPINE [Concomitant]
  3. CINNARIZINE 30 MG [Concomitant]

REACTIONS (3)
  - AGGRESSION [None]
  - ALCOHOL INTERACTION [None]
  - THINKING ABNORMAL [None]
